FAERS Safety Report 6444283-5 (Version None)
Quarter: 2009Q4

REPORT INFORMATION
  Report Type: 
  Country: None (occurrence: None)
  Receive Date: 20091116
  Receipt Date: 20091116
  Transmission Date: 20100525
  Serious: No
  Sender: FDA-Public Use
  Company Number: None

PATIENT
  Age: 36 Year
  Sex: Female
  Weight: 54.4316 kg

DRUGS (1)
  1. IMITREX [Suspect]
     Indication: MIGRAINE
     Dates: start: 20090101, end: 20091101

REACTIONS (2)
  - CONDITION AGGRAVATED [None]
  - MIGRAINE [None]
